FAERS Safety Report 8886646 (Version 2)
Quarter: 2012Q4

REPORT INFORMATION
  Report Type: 
  Country: CA (occurrence: CA)
  Receive Date: 20121105
  Receipt Date: 20121224
  Transmission Date: 20130627
  Serious: Yes (Hospitalization, Other)
  Sender: FDA-Public Use
  Company Number: PHHY2012CA100307

PATIENT
  Sex: Female

DRUGS (1)
  1. TASIGNA [Suspect]
     Indication: CHRONIC MYELOID LEUKAEMIA
     Dosage: 200 mg, BID
     Route: 048
     Dates: start: 201003, end: 20120727

REACTIONS (3)
  - Peripheral circulatory failure [Recovering/Resolving]
  - Myocardial infarction [Unknown]
  - Skin depigmentation [Recovered/Resolved]
